FAERS Safety Report 25120540 (Version 1)
Quarter: 2025Q1

REPORT INFORMATION
  Report Type: Spontaneous
  Country: CN (occurrence: CN)
  Receive Date: 20250325
  Receipt Date: 20250325
  Transmission Date: 20250408
  Serious: Yes (Hospitalization, Other)
  Sender: NOVARTIS
  Company Number: CN-002147023-NVSC2025CN047922

PATIENT
  Age: 53 Year
  Weight: 40 kg

DRUGS (2)
  1. CARBAMAZEPINE [Suspect]
     Active Substance: CARBAMAZEPINE
     Indication: Post herpetic neuralgia
     Dosage: 0.200 G, BID
     Route: 048
     Dates: start: 20241213, end: 20241225
  2. VALACYCLOVIR HYDROCHLORIDE [Suspect]
     Active Substance: VALACYCLOVIR HYDROCHLORIDE
     Indication: Herpes zoster
     Dosage: 0.300 G, BID
     Route: 048
     Dates: start: 20241217, end: 20241225

REACTIONS (4)
  - Drug eruption [Recovering/Resolving]
  - Rash maculo-papular [Recovering/Resolving]
  - Pruritus [Recovering/Resolving]
  - Erythema [Recovering/Resolving]

NARRATIVE: CASE EVENT DATE: 20241226
